FAERS Safety Report 8871668 (Version 1)
Quarter: 2012Q4

REPORT INFORMATION
  Report Type: 
  Country: US (occurrence: US)
  Receive Date: 20121026
  Receipt Date: 20121026
  Transmission Date: 20130627
  Serious: No
  Sender: FDA-Public Use
  Company Number: US-AMGEN-USASP2012048571

PATIENT
  Age: 70 Year
  Sex: Female
  Weight: 36.28 kg

DRUGS (9)
  1. ENBREL [Suspect]
     Indication: PRODUCT USED FOR UNKNOWN INDICATION
     Dosage: 50 mg, qwk
     Route: 058
  2. HYZAAR [Concomitant]
     Dosage: 100-12.5
  3. AMLODIPINE [Concomitant]
     Dosage: 10 mg, UNK
  4. METHOTREXATE [Concomitant]
     Dosage: 2.5 mg, UNK
  5. SYNTHROID [Concomitant]
     Dosage: 50 mug, UNK
  6. ARAVA [Concomitant]
     Dosage: 20 mg, UNK
  7. VITAMIN D /00107901/ [Concomitant]
     Dosage: 400 UNK, UNK
  8. FOLIC ACID [Concomitant]
     Dosage: UNK
  9. ASPIRINE EC [Concomitant]
     Dosage: 81 mg, UNK

REACTIONS (1)
  - Injection site bruising [Unknown]
